FAERS Safety Report 10368725 (Version 2)
Quarter: 2014Q4

REPORT INFORMATION
  Report Type: Report from Study
  Country: JP (occurrence: JP)
  Receive Date: 20140807
  Receipt Date: 20141231
  Transmission Date: 20150528
  Serious: Yes (Other)
  Sender: FDA-Public Use
  Company Number: PHHY2014JP096139

PATIENT
  Age: 43 Year
  Sex: Male

DRUGS (38)
  1. CLOZARIL [Suspect]
     Active Substance: CLOZAPINE
     Dosage: 50 MG, QD
     Route: 048
     Dates: start: 20120813, end: 20120815
  2. CLOZARIL [Suspect]
     Active Substance: CLOZAPINE
     Dosage: 175 MG, QD
     Route: 048
     Dates: start: 20120826, end: 20120828
  3. CLOZARIL [Suspect]
     Active Substance: CLOZAPINE
     Dosage: 275 MG, QD
     Route: 048
     Dates: start: 20120912, end: 20120918
  4. FLUNITRAZEPAM [Concomitant]
     Active Substance: FLUNITRAZEPAM
     Dosage: 2 MG, UNK
     Route: 048
     Dates: start: 20121109
  5. CLOZARIL [Suspect]
     Active Substance: CLOZAPINE
     Dosage: 75 MG, QD
     Route: 048
     Dates: start: 20120816, end: 20120817
  6. CLOZARIL [Suspect]
     Active Substance: CLOZAPINE
     Dosage: 225 MG, QD
     Route: 048
     Dates: start: 20120906, end: 20120911
  7. NEULEPTIL [Concomitant]
     Active Substance: PERICIAZINE
     Dosage: 75 MG, UNK
     Route: 048
  8. MAGMITT [Concomitant]
     Active Substance: MAGNESIUM OXIDE
     Dosage: 2640 MG, UNK
     Route: 048
  9. MAGMITT [Concomitant]
     Active Substance: MAGNESIUM OXIDE
     Dosage: 2970 MG, UNK
     Route: 048
  10. MUCOSTA [Concomitant]
     Active Substance: REBAMIPIDE
     Indication: SCHIZOPHRENIA, PARANOID TYPE
     Dosage: 300 MG, UNK
     Route: 048
     Dates: end: 20120930
  11. HEAVY MAGNESIUM OXIDE [Concomitant]
     Indication: SCHIZOPHRENIA, PARANOID TYPE
     Dosage: 2000 MG, UNK
     Route: 048
     Dates: start: 20121001, end: 20121002
  12. COLONEL [Concomitant]
     Active Substance: CALCIUM POLYCARBOPHIL
     Dosage: 1.5 G, UNK
     Route: 048
  13. CLOZARIL [Suspect]
     Active Substance: CLOZAPINE
     Dosage: 125 MG,QD
     Route: 048
     Dates: start: 20120820, end: 20120822
  14. NEULEPTIL [Concomitant]
     Active Substance: PERICIAZINE
     Dosage: 50 MG, UNK
     Route: 048
  15. NEULEPTIL [Concomitant]
     Active Substance: PERICIAZINE
     Dosage: 25 MG, UNK
     Route: 048
     Dates: end: 20120827
  16. PICOSULFAT [Concomitant]
     Indication: SCHIZOPHRENIA, PARANOID TYPE
     Route: 048
  17. CLOZARIL [Suspect]
     Active Substance: CLOZAPINE
     Indication: SCHIZOPHRENIA, PARANOID TYPE
     Dosage: 12.5 MG,QD
     Route: 048
     Dates: start: 20120809, end: 20120809
  18. CLOZARIL [Suspect]
     Active Substance: CLOZAPINE
     Dosage: 300 MG, QD
     Route: 048
     Dates: start: 20120919, end: 20120925
  19. COLONEL [Concomitant]
     Active Substance: CALCIUM POLYCARBOPHIL
     Indication: SCHIZOPHRENIA, PARANOID TYPE
     Dosage: 1 G, UNK
     Route: 048
     Dates: start: 20121121
  20. CLOZARIL [Suspect]
     Active Substance: CLOZAPINE
     Dosage: 25 MG,QD
     Route: 048
     Dates: start: 20120810, end: 20120812
  21. CLOZARIL [Suspect]
     Active Substance: CLOZAPINE
     Dosage: 225 MG,QD
     Route: 048
     Dates: start: 20121128, end: 20130108
  22. FLUNITRAZEPAM [Concomitant]
     Active Substance: FLUNITRAZEPAM
     Indication: SCHIZOPHRENIA, PARANOID TYPE
     Dosage: 2 MG, UNK
     Route: 048
     Dates: start: 20070612, end: 20121108
  23. SENNOSIDE [Concomitant]
     Active Substance: SENNOSIDES
     Indication: SCHIZOPHRENIA, PARANOID TYPE
     Dosage: 12 MG, UNK
     Route: 048
     Dates: start: 20070612, end: 20121003
  24. DEPAKENE [Concomitant]
     Active Substance: VALPROIC ACID
     Indication: SCHIZOPHRENIA, PARANOID TYPE
     Dosage: 12 ML, UNK
     Route: 048
     Dates: start: 20121004
  25. CLOZARIL [Suspect]
     Active Substance: CLOZAPINE
     Dosage: 325 MG,QD
     Route: 048
     Dates: start: 20120926, end: 20120930
  26. PANTETHINE [Concomitant]
     Active Substance: PANTETHINE
     Indication: SCHIZOPHRENIA, PARANOID TYPE
     Dosage: 2000 MG, UNK
     Route: 048
     Dates: start: 20121017
  27. DEPAKENE [Concomitant]
     Active Substance: VALPROIC ACID
     Dosage: 24 ML, UNK
     Route: 048
     Dates: end: 20130115
  28. CLOZARIL [Suspect]
     Active Substance: CLOZAPINE
     Dosage: 100 MG, QD
     Route: 048
     Dates: start: 20120818, end: 20120819
  29. CLOZARIL [Suspect]
     Active Substance: CLOZAPINE
     Dosage: 150 MG, QD
     Route: 048
     Dates: start: 20120823, end: 20120825
  30. CLOZARIL [Suspect]
     Active Substance: CLOZAPINE
     Dosage: 250 MG, QD
     Route: 048
     Dates: start: 20130109
  31. NEULEPTIL [Concomitant]
     Active Substance: PERICIAZINE
     Indication: SCHIZOPHRENIA, PARANOID TYPE
     Dosage: 100 MG, UNK
     Route: 048
     Dates: start: 20120713
  32. MAGMITT [Concomitant]
     Active Substance: MAGNESIUM OXIDE
     Dosage: 1980 MG, UNK
     Route: 048
  33. SODIUM VALPROATE [Concomitant]
     Active Substance: VALPROATE SODIUM
     Indication: SCHIZOPHRENIA, PARANOID TYPE
     Dosage: 1200 MG, UNK
     Route: 048
     Dates: start: 20070612
  34. GLYCERIN. [Concomitant]
     Active Substance: GLYCERIN
     Indication: SCHIZOPHRENIA, PARANOID TYPE
     Route: 065
  35. CLOZARIL [Suspect]
     Active Substance: CLOZAPINE
     Dosage: 200 MG, QD
     Route: 048
     Dates: start: 20120829, end: 20120905
  36. CLOZARIL [Suspect]
     Active Substance: CLOZAPINE
     Dosage: 200 MG, QD
     Route: 048
     Dates: start: 20121001, end: 20121127
  37. MAGMITT [Concomitant]
     Active Substance: MAGNESIUM OXIDE
     Indication: SCHIZOPHRENIA, PARANOID TYPE
     Dosage: 990 MG, UNK
     Route: 048
     Dates: start: 20081031
  38. MAGMITT [Concomitant]
     Active Substance: MAGNESIUM OXIDE
     Dosage: 2310 MG, UNK
     Route: 048

REACTIONS (12)
  - Rhinorrhoea [Unknown]
  - Cough [Unknown]
  - Blood glucose decreased [Unknown]
  - Hot flush [Unknown]
  - Ileus [Recovered/Resolved]
  - Abdominal distension [Unknown]
  - Platelet count decreased [Unknown]
  - Eosinophil count increased [Unknown]
  - Pneumonia [Recovered/Resolved]
  - Haematocrit decreased [Unknown]
  - Haemoglobin decreased [Unknown]
  - Lymphocyte count increased [Unknown]

NARRATIVE: CASE EVENT DATE: 20120929
